FAERS Safety Report 16270083 (Version 3)
Quarter: 2019Q4

REPORT INFORMATION
  Report Type: Spontaneous
  Country: US (occurrence: US)
  Receive Date: 20190503
  Receipt Date: 20191204
  Transmission Date: 20200122
  Serious: No
  Sender: FDA-Public Use
  Company Number: US-TEVA-2019-US-1044620

PATIENT
  Sex: Female

DRUGS (4)
  1. CLONAZEPAM ACTAVIS [Suspect]
     Active Substance: CLONAZEPAM
     Indication: POST-TRAUMATIC STRESS DISORDER
  2. CLONAZEPAM ACTAVIS [Suspect]
     Active Substance: CLONAZEPAM
     Indication: PROPHYLAXIS
  3. CLONAZEPAM ACTAVIS [Suspect]
     Active Substance: CLONAZEPAM
     Indication: ANXIETY
     Dosage: 1.5 MILLIGRAM DAILY; ROUND, YELLOW, SCORED/R/34; PINK, R 33 ONE SIDE OTHER SIDE SCORE MARK
     Route: 065
     Dates: start: 201902, end: 201902
  4. CLONAZEPAM ACTAVIS [Suspect]
     Active Substance: CLONAZEPAM
     Indication: PANIC DISORDER
     Dates: end: 20190430

REACTIONS (5)
  - Withdrawal syndrome [Not Recovered/Not Resolved]
  - Product substitution issue [Unknown]
  - Insomnia [Recovering/Resolving]
  - Drug ineffective [Unknown]
  - Blood pressure increased [Not Recovered/Not Resolved]

NARRATIVE: CASE EVENT DATE: 20190424
